FAERS Safety Report 25320613 (Version 1)
Quarter: 2025Q2

REPORT INFORMATION
  Report Type: Report from Study
  Country: US (occurrence: US)
  Receive Date: 20250515
  Receipt Date: 20250515
  Transmission Date: 20250717
  Serious: Yes (Other)
  Sender: MALLINCKRODT
  Company Number: US-MALLINCKRODT-MNK202502556

PATIENT
  Sex: Female
  Weight: 196 kg

DRUGS (1)
  1. CORTICOTROPIN [Suspect]
     Active Substance: CORTICOTROPIN
     Indication: Keratitis interstitial
     Route: 058
     Dates: start: 20250331

REACTIONS (6)
  - Corneal transplant [Unknown]
  - Blindness unilateral [Unknown]
  - Dry eye [Unknown]
  - Glycosylated haemoglobin increased [Unknown]
  - Increased appetite [Unknown]
  - Weight increased [Unknown]

NARRATIVE: CASE EVENT DATE: 20250101
